FAERS Safety Report 24218724 (Version 1)
Quarter: 2024Q3

REPORT INFORMATION
  Report Type: Spontaneous
  Country: US (occurrence: None)
  Receive Date: 20240815
  Receipt Date: 20240815
  Transmission Date: 20241017
  Serious: Yes (Hospitalization, Other)
  Sender: Public
  Company Number: None

PATIENT
  Age: 36 Year
  Sex: Female
  Weight: 58.5 kg

DRUGS (2)
  1. TRASTUZUMAB-QYYP [Suspect]
     Active Substance: TRASTUZUMAB-QYYP
     Indication: Breast cancer
     Route: 042
     Dates: start: 20240719, end: 20240719
  2. IBUPROFEN [Concomitant]
     Active Substance: IBUPROFEN

REACTIONS (8)
  - Pyrexia [None]
  - Chills [None]
  - Dizziness [None]
  - Nausea [None]
  - Syncope [None]
  - Vomiting [None]
  - Rash [None]
  - Infusion related reaction [None]

NARRATIVE: CASE EVENT DATE: 20240719
